FAERS Safety Report 4319842-6 (Version None)
Quarter: 2004Q1

REPORT INFORMATION
  Report Type: 
  Country: None (occurrence: None)
  Receive Date: 20040319
  Receipt Date: 20040309
  Transmission Date: 20041129
  Serious: Yes (Hospitalization)
  Sender: FDA-Public Use
  Company Number: PHEH2004US02886

PATIENT
  Age: 54 Year
  Sex: Female

DRUGS (11)
  1. MIACALCIN [Suspect]
     Indication: OSTEOPOROSIS
     Dosage: 2 SPRAYS DAILY
     Dates: start: 20000101
  2. ENBREL [Suspect]
     Indication: RHEUMATOID ARTHRITIS
     Dosage: 25 MG, 1 IN 6 DAYS
     Route: 058
     Dates: start: 20030201, end: 20030409
  3. VALDECOXIB [Suspect]
     Dosage: 20 MG, QD
     Route: 048
     Dates: start: 20010101
  4. WARFARIN SODIUM [Concomitant]
     Route: 042
     Dates: start: 19960101
  5. METRONIDAZOLE [Concomitant]
     Dates: start: 19980101
  6. CIPROFLOXACIN [Concomitant]
     Dates: start: 19980101
  7. DOXYCYCLINE [Concomitant]
     Dates: start: 19980101
  8. RANITIDINE HYDROCHLORIDE [Concomitant]
     Dosage: UNK, UNK
     Dates: start: 19960101
  9. CYANOCOBALAMIN [Concomitant]
     Dates: start: 19960101
  10. PAMIDRONATE DISODIUM [Concomitant]
     Dates: start: 19980101
  11. OMEPRAZOLE [Concomitant]
     Dates: start: 19990101

REACTIONS (12)
  - ATELECTASIS [None]
  - COCCIDIOIDOMYCOSIS [None]
  - COUGH [None]
  - FLANK PAIN [None]
  - GRANULOMA [None]
  - HAEMATURIA [None]
  - LUNG INFILTRATION [None]
  - NEPHROLITHIASIS [None]
  - PLEURISY [None]
  - PLEURITIC PAIN [None]
  - PULMONARY COCCIDIOIDES [None]
  - PULMONARY MASS [None]
